FAERS Safety Report 14923878 (Version 1)
Quarter: 2018Q2

REPORT INFORMATION
  Report Type: Spontaneous
  Country: GB (occurrence: GB)
  Receive Date: 20180522
  Receipt Date: 20180522
  Transmission Date: 20180711
  Serious: Yes (Hospitalization)
  Sender: FDA-Public Use
  Company Number: GB-ROCHE-2125908

PATIENT

DRUGS (8)
  1. TEMOZOLOMIDE. [Suspect]
     Active Substance: TEMOZOLOMIDE
     Indication: PRODUCT USED FOR UNKNOWN INDICATION
     Route: 065
     Dates: start: 201801
  2. CARBOPLATIN. [Suspect]
     Active Substance: CARBOPLATIN
     Indication: PRODUCT USED FOR UNKNOWN INDICATION
     Route: 065
  3. ETOPOSIDE. [Suspect]
     Active Substance: ETOPOSIDE
     Indication: PRODUCT USED FOR UNKNOWN INDICATION
     Route: 065
  4. TEMOZOLOMIDE. [Suspect]
     Active Substance: TEMOZOLOMIDE
     Route: 065
     Dates: start: 201502
  5. CAPECITABINE. [Suspect]
     Active Substance: CAPECITABINE
     Indication: PRODUCT USED FOR UNKNOWN INDICATION
     Route: 065
     Dates: start: 201508
  6. CAPECITABINE. [Suspect]
     Active Substance: CAPECITABINE
     Route: 065
  7. PAMIDRONATE [Suspect]
     Active Substance: PAMIDRONATE DISODIUM
     Indication: BONE LESION
     Route: 065
     Dates: start: 201711
  8. EVEROLIMUS. [Suspect]
     Active Substance: EVEROLIMUS
     Indication: PRODUCT USED FOR UNKNOWN INDICATION
     Route: 065
     Dates: start: 201211

REACTIONS (24)
  - Ovarian epithelial cancer [Unknown]
  - Lower respiratory tract infection [Unknown]
  - Chest pain [Unknown]
  - 5-hydroxyindolacetic acid increased [Unknown]
  - Borderline serous tumour of ovary [Unknown]
  - Bone loss [Unknown]
  - Mobility decreased [Recovering/Resolving]
  - Bone pain [Recovering/Resolving]
  - Metastases to liver [Unknown]
  - Carcinoid tumour pulmonary [Unknown]
  - Lung disorder [Unknown]
  - Pain [Unknown]
  - Urticaria [Unknown]
  - Thyroid disorder [Unknown]
  - Metastases to bone [Unknown]
  - Hilar lymphadenopathy [Unknown]
  - Neuroendocrine tumour [Unknown]
  - Blood gastrin increased [Unknown]
  - Pulmonary mass [Unknown]
  - Dyspnoea [Recovering/Resolving]
  - Pruritus generalised [Unknown]
  - Pelvic mass [Unknown]
  - Spinal pain [Unknown]
  - Cough [Unknown]

NARRATIVE: CASE EVENT DATE: 201407
